FAERS Safety Report 5747822-2 (Version None)
Quarter: 2008Q2

REPORT INFORMATION
  Report Type: 
  Country: None (occurrence: None)
  Receive Date: 20080523
  Receipt Date: 20080519
  Transmission Date: 20081010
  Serious: Yes (Death)
  Sender: FDA-Public Use
  Company Number: B0520476A

PATIENT
  Age: 84 Year
  Sex: Male
  Weight: 60 kg

DRUGS (7)
  1. ARIXTRA [Suspect]
     Indication: DRUG USE FOR UNKNOWN INDICATION
     Dosage: 7.5MG PER DAY
     Route: 058
     Dates: start: 20080324, end: 20080403
  2. PREVISCAN [Suspect]
     Route: 065
     Dates: end: 20080324
  3. ALLOPURINOL [Concomitant]
     Route: 065
  4. ZOLOFT [Concomitant]
     Route: 065
  5. MOPRAL [Concomitant]
     Route: 065
  6. OXYGEN THERAPY [Concomitant]
     Route: 065
  7. CORENITEC [Concomitant]
     Route: 065

REACTIONS (9)
  - ASTHENIA [None]
  - DEATH [None]
  - FALL [None]
  - HEMIPARESIS [None]
  - INTRACRANIAL HAEMATOMA [None]
  - MOUTH HAEMORRHAGE [None]
  - NUCHAL RIGIDITY [None]
  - SOMNOLENCE [None]
  - THROMBOSIS [None]
